FAERS Safety Report 10729029 (Version 1)
Quarter: 2015Q1

REPORT INFORMATION
  Report Type: Spontaneous
  Country: US (occurrence: US)
  Receive Date: 20150122
  Receipt Date: 20150122
  Transmission Date: 20150721
  Serious: No
  Sender: FDA-Public Use
  Company Number: US-PFIZER INC-2015024681

PATIENT
  Sex: Female

DRUGS (1)
  1. GABAPENTIN. [Suspect]
     Active Substance: GABAPENTIN
     Dosage: UNK

REACTIONS (6)
  - Dyskinesia [Unknown]
  - Sleep disorder [Unknown]
  - Muscle spasms [Unknown]
  - Muscle twitching [Unknown]
  - Drug ineffective [Unknown]
  - Abdominal discomfort [Unknown]
